FAERS Safety Report 4297399-6 (Version None)
Quarter: 2004Q1

REPORT INFORMATION
  Report Type: 
  Country: None (occurrence: None)
  Receive Date: 20040213
  Receipt Date: 20040204
  Transmission Date: 20041129
  Serious: Yes (Death, Other)
  Sender: FDA-Public Use
  Company Number: 2011260

PATIENT
  Age: 21 Year
  Sex: Male

DRUGS (2)
  1. OXYCONTIN [Suspect]
  2. MS CONTIN [Suspect]

REACTIONS (2)
  - DRUG ABUSER [None]
  - OVERDOSE [None]
